FAERS Safety Report 7411162-6 (Version None)
Quarter: 2011Q2

REPORT INFORMATION
  Report Type: 
  Country: None (occurrence: None)
  Receive Date: 20110413
  Receipt Date: 20100322
  Transmission Date: 20111010
  Serious: Yes (Other)
  Sender: FDA-Public Use
  Company Number: US-BRISTOL-MYERS SQUIBB COMPANY-15012404

PATIENT

DRUGS (4)
  1. OXALIPLATIN [Suspect]
  2. ERBITUX [Suspect]
     Indication: COLON CANCER
  3. FLUOROURACIL [Suspect]
  4. FOLINIC ACID [Suspect]

REACTIONS (3)
  - DIARRHOEA [None]
  - DEHYDRATION [None]
  - ELECTROLYTE IMBALANCE [None]
